FAERS Safety Report 25726462 (Version 2)
Quarter: 2025Q3

REPORT INFORMATION
  Report Type: Spontaneous
  Country: US (occurrence: US)
  Receive Date: 20250826
  Receipt Date: 20250929
  Transmission Date: 20251020
  Serious: No
  Sender: BAYER HEALTHCARE PHARMACEUTICALS INC.
  Company Number: US-BAYER-2025A112346

PATIENT
  Sex: Female

DRUGS (2)
  1. ESTRADIOL [Suspect]
     Active Substance: ESTRADIOL
     Route: 059
  2. ESTRADIOL [Suspect]
     Active Substance: ESTRADIOL

REACTIONS (3)
  - Incorrect dose administered [None]
  - Device adhesion issue [None]
  - Wrong technique in device usage process [None]
